FAERS Safety Report 23694607 (Version 1)
Quarter: 2024Q2

REPORT INFORMATION
  Report Type: Spontaneous
  Country: US (occurrence: US)
  Receive Date: 20240402
  Receipt Date: 20240402
  Transmission Date: 20240716
  Serious: No
  Sender: FDA-Public Use
  Company Number: US-TEVA-VS-3143383

PATIENT
  Sex: Female

DRUGS (2)
  1. AJOVY [Suspect]
     Active Substance: FREMANEZUMAB-VFRM
  2. AJOVY [Suspect]
     Active Substance: FREMANEZUMAB-VFRM

REACTIONS (7)
  - Swelling [Recovered/Resolved]
  - Pyrexia [Recovered/Resolved]
  - Contusion [Unknown]
  - Feeling abnormal [Unknown]
  - Erythema [Recovered/Resolved]
  - Therapeutic product effect incomplete [Unknown]
  - Urticaria [Unknown]

NARRATIVE: CASE EVENT DATE: 20231218
